FAERS Safety Report 8074706-X (Version None)
Quarter: 2012Q1

REPORT INFORMATION
  Report Type: 
  Country: None (occurrence: None)
  Receive Date: 20120126
  Receipt Date: 20120120
  Transmission Date: 20120608
  Serious: Yes (Other)
  Sender: FDA-Public Use
  Company Number: JP-ABBOTT-12P-087-0894961-00

PATIENT
  Sex: Female

DRUGS (9)
  1. HUMIRA [Suspect]
     Indication: CROHN'S DISEASE
     Route: 058
     Dates: start: 20110408, end: 20110408
  2. HUMIRA [Suspect]
     Dates: end: 20111107
  3. HUMIRA [Suspect]
  4. PREDNISOLONE [Concomitant]
     Indication: CROHN'S DISEASE
     Route: 048
  5. RABEPRAZOLE SODIUM [Concomitant]
     Indication: CROHN'S DISEASE
     Route: 048
  6. CLOSTRIDIUM BUTYRICUM [Concomitant]
     Indication: CROHN'S DISEASE
     Route: 048
  7. HERBAL MEDICINE (DAI-KENCHU-TO) [Concomitant]
     Indication: CROHN'S DISEASE
     Route: 048
  8. TPN [Concomitant]
     Indication: CROHN'S DISEASE
     Route: 048
  9. ESTRADIOL [Concomitant]
     Indication: TURNER'S SYNDROME
     Route: 040

REACTIONS (1)
  - ALOPECIA [None]
